FAERS Safety Report 7385287-8 (Version None)
Quarter: 2011Q1

REPORT INFORMATION
  Report Type: 
  Country: None (occurrence: None)
  Receive Date: 20110330
  Receipt Date: 20100420
  Transmission Date: 20110831
  Serious: No
  Sender: FDA-Public Use
  Company Number: US-MYLANLABS-2010S1006500

PATIENT
  Age: 67 Year
  Sex: Female
  Weight: 108.41 kg

DRUGS (7)
  1. VITAMIN B COMPLEX CAP [Concomitant]
  2. HYDROCHLOROTHIAZIDE [Concomitant]
  3. XANAX [Concomitant]
  4. SEROQUEL [Concomitant]
     Indication: INSOMNIA
  5. EMSAM [Suspect]
     Indication: DEPRESSION
     Route: 062
     Dates: start: 20100101
  6. OMEPRAZOLE [Concomitant]
  7. CENTRUM SILVER [Concomitant]

REACTIONS (7)
  - DEPRESSION [None]
  - APPLICATION SITE ERYTHEMA [None]
  - APPLICATION SITE HYPERSENSITIVITY [None]
  - APPLICATION SITE PAIN [None]
  - APPLICATION SITE DRYNESS [None]
  - DRUG EFFECT DECREASED [None]
  - APPLICATION SITE REACTION [None]
